FAERS Safety Report 5583705-9 (Version None)
Quarter: 2008Q1

REPORT INFORMATION
  Report Type: 
  Country: None (occurrence: None)
  Receive Date: 20080103
  Receipt Date: 20071219
  Transmission Date: 20080703
  Serious: Yes (Death)
  Sender: FDA-Public Use
  Company Number: JPI-P-002691

PATIENT
  Age: 48 Year
  Sex: Female

DRUGS (8)
  1. XYREM [Suspect]
     Indication: FIBROMYALGIA
     Dosage: 6 GM (3 MG, 2 IN 1 D), ORAL; 4.5 GM (2.25 GM, 2 IN 1 D), ORAL
     Route: 048
     Dates: start: 20070906, end: 20070101
  2. XYREM [Suspect]
     Indication: SOMNOLENCE
     Dosage: 6 GM (3 MG, 2 IN 1 D), ORAL; 4.5 GM (2.25 GM, 2 IN 1 D), ORAL
     Route: 048
     Dates: start: 20070906, end: 20070101
  3. XYREM [Suspect]
     Indication: FIBROMYALGIA
     Dosage: 6 GM (3 MG, 2 IN 1 D), ORAL; 4.5 GM (2.25 GM, 2 IN 1 D), ORAL
     Route: 048
     Dates: start: 20070101
  4. XYREM [Suspect]
     Indication: SOMNOLENCE
     Dosage: 6 GM (3 MG, 2 IN 1 D), ORAL; 4.5 GM (2.25 GM, 2 IN 1 D), ORAL
     Route: 048
     Dates: start: 20070101
  5. ACYCLOVIR [Concomitant]
  6. CELECOXIB [Concomitant]
  7. PREGABALIN (PREGABALIN) [Concomitant]
  8. VENLAFAXINE HCL [Concomitant]

REACTIONS (1)
  - SURGERY [None]
